FAERS Safety Report 10081806 (Version 1)
Quarter: 2014Q2

REPORT INFORMATION
  Report Type: Report from Study
  Country: US (occurrence: US)
  Receive Date: 20140416
  Receipt Date: 20140416
  Transmission Date: 20141212
  Serious: Yes (Other)
  Sender: FDA-Public Use
  Company Number: US-BAYER-2014-054278

PATIENT
  Age: 55 Year
  Sex: Male

DRUGS (2)
  1. BETASERON [Suspect]
     Indication: MULTIPLE SCLEROSIS
     Dosage: 8 MIU, QOD
     Route: 058
     Dates: start: 20140226
  2. VISTARIL [Concomitant]

REACTIONS (2)
  - Arthropathy [Not Recovered/Not Resolved]
  - Joint swelling [Not Recovered/Not Resolved]
